FAERS Safety Report 11752306 (Version 1)
Quarter: 2015Q4

REPORT INFORMATION
  Report Type: Spontaneous
  Country: JP (occurrence: JP)
  Receive Date: 20151118
  Receipt Date: 20151118
  Transmission Date: 20160304
  Serious: Yes (Other)
  Sender: FDA-Public Use
  Company Number: JP-ALLERGAN-1524069US

PATIENT
  Age: 70 Year
  Sex: Male

DRUGS (1)
  1. BOTOX [Suspect]
     Active Substance: ONABOTULINUMTOXINA
     Indication: FACIAL SPASM
     Dosage: 10 UNITS, SINGLE
     Route: 030
     Dates: start: 20151001, end: 20151001

REACTIONS (5)
  - Thirst [Unknown]
  - Weight decreased [Unknown]
  - Urinary retention [Unknown]
  - Muscular weakness [Unknown]
  - Insomnia [Unknown]
